FAERS Safety Report 7575417-7 (Version None)
Quarter: 2011Q2

REPORT INFORMATION
  Report Type: 
  Country: None (occurrence: None)
  Receive Date: 20110627
  Receipt Date: 20110620
  Transmission Date: 20111010
  Serious: Yes (Life-Threatening, Hospitalization)
  Sender: FDA-Public Use
  Company Number: FR-B.I. PHARMACEUTICALS,INC./RIDGEFIELD-2011-FF-00103FF

PATIENT
  Sex: Female

DRUGS (3)
  1. PRAMIPEXOLE DIHYCHLLORIDE [Suspect]
     Indication: RESTLESS LEGS SYNDROME
     Dosage: 0.35 MG
     Route: 048
     Dates: start: 20080401
  2. PRAMIPEXOLE DIHYCHLLORIDE [Suspect]
     Dosage: 1.4 MG
     Route: 048
     Dates: start: 20100101, end: 20110101
  3. PRAMIPEXOLE DIHYCHLLORIDE [Suspect]
     Dosage: 0.7 MG
     Route: 048

REACTIONS (3)
  - DEPRESSION [None]
  - SUICIDE ATTEMPT [None]
  - PATHOLOGICAL GAMBLING [None]
